FAERS Safety Report 24146789 (Version 4)
Quarter: 2024Q4

REPORT INFORMATION
  Report Type: Spontaneous
  Country: US (occurrence: US)
  Receive Date: 20240729
  Receipt Date: 20241231
  Transmission Date: 20250115
  Serious: Yes (Other)
  Sender: AMGEN
  Company Number: US-AMGEN-USASP2024147893

PATIENT
  Age: 60 Year
  Sex: Male

DRUGS (20)
  1. TEPEZZA [Suspect]
     Active Substance: TEPROTUMUMAB-TRBW
     Indication: Endocrine ophthalmopathy
     Dosage: 10 MILLIGRAM/KILOGRAM, Q3WK, (1080 MILLIGRAM) FIRST INFUSION)
     Route: 042
     Dates: start: 20230403
  2. TEPEZZA [Suspect]
     Active Substance: TEPROTUMUMAB-TRBW
     Dosage: 20 MILLIGRAM/KILOGRAM, Q3WK,(2160 MILLIGRAM) (SECOND INFUSION)
     Route: 042
     Dates: start: 20230424
  3. TEPEZZA [Suspect]
     Active Substance: TEPROTUMUMAB-TRBW
     Dosage: 20 MILLIGRAM/KILOGRAM, Q3WK, ,(2160 MILLIGRAM) (THIRD INFUSION)
     Route: 042
     Dates: start: 20230515
  4. TEPEZZA [Suspect]
     Active Substance: TEPROTUMUMAB-TRBW
     Dosage: 20 MILLIGRAM/KILOGRAM, Q3WK, ,(2160 MILLIGRAM) (FOURTH INFUSION)
     Route: 042
     Dates: start: 20230605
  5. TEPEZZA [Suspect]
     Active Substance: TEPROTUMUMAB-TRBW
     Dosage: 20 MILLIGRAM/KILOGRAM, Q3WK, ,(2160 MILLIGRAM), (FIFTH INFUSION)
     Route: 042
     Dates: start: 20230626
  6. TROPICAMIDE [Concomitant]
     Active Substance: TROPICAMIDE
     Dosage: UNK
     Route: 065
  7. DEPO TESTADIOL [Concomitant]
     Dosage: UNK
     Route: 065
  8. SYSTANE BALANCE [Concomitant]
     Active Substance: PROPYLENE GLYCOL
     Dosage: UNK
     Route: 065
  9. GLIMEPIRIDE [Concomitant]
     Active Substance: GLIMEPIRIDE
  10. NOVOLIN L [Concomitant]
     Active Substance: INSULIN HUMAN
     Dosage: UNK
     Route: 065
  11. INSULIN NOS [Concomitant]
     Active Substance: INSULIN NOS
     Dosage: UNK UNK, TID ( 100 UNIT/ML INJECTION SOLUTION) (30 UNIT)
     Route: 065
  12. LATANOPROST [Concomitant]
     Active Substance: LATANOPROST
     Dosage: 0.005 PERCENT, QD (HS)
     Route: 047
  13. LEVOTHYROXINE SODIUM [Concomitant]
     Active Substance: LEVOTHYROXINE SODIUM
     Dosage: UNK
     Route: 048
  14. SYSTANE COMPLETE [Concomitant]
     Active Substance: PROPYLENE GLYCOL
     Dosage: 0.6 PERCENT (DROPS 2-3 XA DAY)
     Route: 047
  15. FENOFIBRATE [Concomitant]
     Active Substance: FENOFIBRATE
     Dosage: 160 MILLIGRAM
     Route: 048
  16. LEVOTHYROXINE [Concomitant]
     Active Substance: LEVOTHYROXINE
     Dosage: 200 MICROGRAM
     Route: 048
  17. TYLENOL [Concomitant]
     Active Substance: ACETAMINOPHEN
     Dosage: 325 MILLIGRAM
     Route: 048
  18. BRINZOLAMIDE [Concomitant]
     Active Substance: BRINZOLAMIDE
     Dosage: 1 PERCENT, BID (DROP)
     Route: 047
  19. SYSTANE (HYPROMELLOSE 2910 (4000 MPA.S)) [Concomitant]
     Active Substance: HYPROMELLOSE 2910 (4000 MPA.S)
     Dosage: UNK ((PF) 0.4-0.3% DROPPERETTE 3-6XDAY OU)
     Route: 047
  20. REFRESH LIQUIGEL [Concomitant]
     Active Substance: CARBOXYMETHYLCELLULOSE SODIUM
     Dosage: UNK UNK, QD (BEDTIME)
     Route: 047

REACTIONS (21)
  - Acute kidney injury [Unknown]
  - Deafness neurosensory [Not Recovered/Not Resolved]
  - Cataract [Unknown]
  - Type 2 diabetes mellitus [Unknown]
  - Irritable bowel syndrome [Unknown]
  - Dehydration [Unknown]
  - Emotional distress [Not Recovered/Not Resolved]
  - Anxiety [Not Recovered/Not Resolved]
  - Fatigue [Unknown]
  - Muscle spasms [Unknown]
  - Nausea [Unknown]
  - Alopecia [Unknown]
  - Hyperglycaemia [Unknown]
  - Product use complaint [Unknown]
  - Madarosis [Unknown]
  - Dry eye [Unknown]
  - Exposure keratitis [Unknown]
  - Lymphadenopathy [Unknown]
  - Vitreous floaters [Unknown]
  - Lacrimation increased [Unknown]
  - Herpes zoster [Unknown]

NARRATIVE: CASE EVENT DATE: 20230101
